FAERS Safety Report 10382272 (Version 1)
Quarter: 2014Q3

REPORT INFORMATION
  Report Type: Spontaneous
  Country: JP (occurrence: JP)
  Receive Date: 20140813
  Receipt Date: 20140813
  Transmission Date: 20150326
  Serious: Yes (Hospitalization)
  Sender: FDA-Public Use
  Company Number: JP-EISAI INC-E2090-03452-SPO-JP

PATIENT
  Age: 53 Year
  Sex: Female

DRUGS (4)
  1. PRAMIPEXOLE [Suspect]
     Active Substance: PRAMIPEXOLE
     Indication: PARKINSON^S DISEASE
     Route: 048
  2. TRERIEF [Suspect]
     Active Substance: ZONISAMIDE
     Indication: PARKINSON^S DISEASE
     Route: 048
  3. LEVODOPA/DOPA-DECARBOXYLASE INHIBITOR [Suspect]
     Active Substance: LEVODOPA
     Indication: PARKINSON^S DISEASE
     Route: 048
  4. DROXIDOPA [Suspect]
     Active Substance: DROXIDOPA
     Indication: PARKINSON^S DISEASE
     Route: 048

REACTIONS (2)
  - Tardive dyskinesia [Unknown]
  - Drug effect decreased [Unknown]
